FAERS Safety Report 4775021-X (Version None)
Quarter: 2005Q3

REPORT INFORMATION
  Report Type: 
  Country: None (occurrence: None)
  Receive Date: 20050920
  Receipt Date: 20050902
  Transmission Date: 20060218
  Serious: Yes (Life-Threatening, Hospitalization)
  Sender: FDA-Public Use
  Company Number: DSA_26873_2005

PATIENT
  Age: 80 Year
  Sex: Female

DRUGS (12)
  1. RENIVACE [Suspect]
     Indication: HYPERTENSION
     Dosage: 5 MG QD PO
     Route: 048
     Dates: start: 20050623, end: 20050806
  2. TRYPTANOL              /AUS/ [Suspect]
     Indication: NOCTURIA
     Dosage: 10 MG QD PO
     Route: 048
     Dates: start: 20050801, end: 20050803
  3. MYSLEE [Suspect]
     Indication: INSOMNIA
     Dosage: 5 MG Q DAY PO
     Route: 048
     Dates: start: 20050617, end: 20050803
  4. TEGRETOL [Suspect]
     Indication: EPILEPSY
     Dosage: 200 MG Q DAY PO
     Route: 048
     Dates: start: 20050620, end: 20050804
  5. GASTER [Suspect]
     Dosage: 20 MG Q DAY PO
     Route: 048
     Dates: start: 20050623, end: 20050802
  6. MAGMITT [Concomitant]
  7. PURSENNID                  /SCH/ [Concomitant]
  8. AMLODIN [Concomitant]
  9. CLARITIN [Concomitant]
  10. FUROSEMIDE [Concomitant]
  11. CEFZON [Concomitant]
  12. BIKLIN [Concomitant]

REACTIONS (15)
  - AGRANULOCYTOSIS [None]
  - BASOPHIL PERCENTAGE DECREASED [None]
  - BLOOD ALKALINE PHOSPHATASE INCREASED [None]
  - C-REACTIVE PROTEIN INCREASED [None]
  - DYSURIA [None]
  - EOSINOPHIL PERCENTAGE DECREASED [None]
  - EPILEPSY [None]
  - GAMMA-GLUTAMYLTRANSFERASE INCREASED [None]
  - LYMPHOCYTE PERCENTAGE INCREASED [None]
  - MONOCYTE PERCENTAGE DECREASED [None]
  - NOCTURIA [None]
  - PLATELET COUNT DECREASED [None]
  - PRURITUS [None]
  - PYREXIA [None]
  - WHITE BLOOD CELL COUNT DECREASED [None]
